FAERS Safety Report 9116076 (Version 2)
Quarter: 2013Q2

REPORT INFORMATION
  Report Type: Spontaneous
  Country: US (occurrence: US)
  Receive Date: 20130225
  Receipt Date: 20130521
  Transmission Date: 20140414
  Serious: Yes (Hospitalization)
  Sender: FDA-Public Use
  Company Number: US-INCYTE CORPORATION-2013IN000343

PATIENT
  Age: 84 Year
  Sex: Male
  Weight: 71.66 kg

DRUGS (7)
  1. JAKAFI [Suspect]
     Indication: MYELOFIBROSIS
     Dosage: 15 MG, BID
     Route: 048
     Dates: start: 20120409
  2. LISINOPRIL [Concomitant]
  3. ISOSORBIDE [Concomitant]
  4. FOLIC ACID [Concomitant]
  5. METOPROLOL [Concomitant]
  6. LASIX [Concomitant]
  7. ASPIRIN [Concomitant]
     Dosage: 81 MG, UNK

REACTIONS (1)
  - Pneumonia [Recovered/Resolved]
